FAERS Safety Report 8718474 (Version 2)
Quarter: 2013Q4

REPORT INFORMATION
  Report Type: Spontaneous
  Country: US (occurrence: US)
  Receive Date: 20120810
  Receipt Date: 20131031
  Transmission Date: 20140711
  Serious: No
  Sender: FDA-Public Use
  Company Number: US-009507513-2012SP036876

PATIENT
  Age: 11 Year
  Sex: Female
  Weight: 31.75 kg

DRUGS (3)
  1. CLARITIN REDITABS [Suspect]
     Indication: SNEEZING
     Dosage: 10 MG, QD
     Route: 048
     Dates: start: 20120610, end: 20120620
  2. CLARITIN REDITABS [Suspect]
     Indication: LACRIMATION INCREASED
  3. CLARITIN REDITABS [Suspect]
     Indication: MEDICAL OBSERVATION

REACTIONS (1)
  - Therapeutic product ineffective [Unknown]
